FAERS Safety Report 7713456-3 (Version None)
Quarter: 2011Q3

REPORT INFORMATION
  Report Type: 
  Country: None (occurrence: None)
  Receive Date: 20110826
  Receipt Date: 20110823
  Transmission Date: 20111222
  Serious: Yes (Other)
  Sender: FDA-Public Use
  Company Number: DE-PFIZER INC-2011195710

PATIENT
  Sex: Male

DRUGS (3)
  1. FLUPIRTINE MALEATE [Suspect]
     Dosage: UNK
     Dates: start: 20110301, end: 20110301
  2. SIMVASTATIN [Concomitant]
     Dosage: UNK
  3. LYRICA [Suspect]
     Dosage: 150 MG DAILY
     Dates: start: 20110301, end: 20110301

REACTIONS (2)
  - LIVER FUNCTION TEST ABNORMAL [None]
  - BLOOD CREATINE PHOSPHOKINASE INCREASED [None]
